FAERS Safety Report 4842412-8 (Version None)
Quarter: 2005Q4

REPORT INFORMATION
  Report Type: 
  Country: None (occurrence: None)
  Receive Date: 20051125
  Receipt Date: 20051115
  Transmission Date: 20060501
  Serious: Yes (Life-Threatening, Hospitalization)
  Sender: FDA-Public Use
  Company Number: PAR_0413_2005

PATIENT
  Age: 29 Year
  Sex: Female

DRUGS (2)
  1. VERAPAMIL [Suspect]
     Dosage: 3.6 G ONCE
  2. SOTALOL [Suspect]
     Dosage: 4.8 G ONCE

REACTIONS (25)
  - ANURIA [None]
  - BLOOD PRESSURE SYSTOLIC DECREASED [None]
  - BRADYCARDIA [None]
  - CARDIAC ARREST [None]
  - CARDIOVASCULAR DISORDER [None]
  - CIRCULATORY COLLAPSE [None]
  - COMA [None]
  - COMPARTMENT SYNDROME [None]
  - GASTROINTESTINAL HAEMORRHAGE [None]
  - HAEMODIALYSIS [None]
  - HYPERKALAEMIA [None]
  - HYPONATRAEMIA [None]
  - LOSS OF CONSCIOUSNESS [None]
  - METABOLIC ACIDOSIS [None]
  - MULTIPLE DRUG OVERDOSE [None]
  - PARALYSIS [None]
  - POISONING [None]
  - PULSE PRESSURE DECREASED [None]
  - PUPIL FIXED [None]
  - PUPILLARY REFLEX IMPAIRED [None]
  - RENAL FAILURE [None]
  - RESPIRATION ABNORMAL [None]
  - RESUSCITATION [None]
  - RHABDOMYOLYSIS [None]
  - UNRESPONSIVE TO PAIN STIMULI [None]
